FAERS Safety Report 7213497-9 (Version None)
Quarter: 2011Q1

REPORT INFORMATION
  Report Type: 
  Country: None (occurrence: None)
  Receive Date: 20110106
  Receipt Date: 20110103
  Transmission Date: 20110831
  Serious: Yes (Other)
  Sender: FDA-Public Use
  Company Number: BR-PFIZER INC-2011000438

PATIENT
  Age: 63 Year
  Sex: Male

DRUGS (5)
  1. CAPTOPRIL [Concomitant]
     Indication: HYPERTENSION
     Dosage: UNK
     Dates: start: 19910101
  2. CHAMPIX [Suspect]
     Dosage: UNK
     Dates: end: 20101230
  3. CLORANA [Concomitant]
     Indication: HYPERTENSION
     Dosage: UNK
     Dates: start: 19910101
  4. CHAMPIX [Suspect]
     Indication: TOBACCO USER
     Dosage: UNK
     Route: 048
     Dates: start: 20101224
  5. PROPRANOLOL [Concomitant]
     Indication: HYPERTENSION
     Dosage: UNK
     Dates: start: 19910101

REACTIONS (3)
  - HYPERTENSION [None]
  - VOMITING [None]
  - INFARCTION [None]
